FAERS Safety Report 5694873-2 (Version None)
Quarter: 2008Q2

REPORT INFORMATION
  Report Type: 
  Country: None (occurrence: None)
  Receive Date: 20080404
  Receipt Date: 20080214
  Transmission Date: 20081010
  Serious: No
  Sender: FDA-Public Use
  Company Number: A0708777A

PATIENT
  Age: 4 Year
  Sex: Female

DRUGS (2)
  1. ADVAIR HFA [Suspect]
     Indication: DRUG USE FOR UNKNOWN INDICATION
     Dosage: 2PUFF UNKNOWN
     Route: 055
     Dates: start: 20080128
  2. ALBUTEROL [Concomitant]

REACTIONS (2)
  - ADVERSE DRUG REACTION [None]
  - COUGH [None]
